FAERS Safety Report 6264175-4 (Version None)
Quarter: 2009Q3

REPORT INFORMATION
  Report Type: 
  Country: None (occurrence: None)
  Receive Date: 20090710
  Receipt Date: 20090630
  Transmission Date: 20100115
  Serious: Yes (Hospitalization)
  Sender: FDA-Public Use
  Company Number: JP-PFIZER INC-2009218869

PATIENT
  Age: 83 Year

DRUGS (12)
  1. MIGLITOL [Suspect]
     Indication: TYPE 2 DIABETES MELLITUS
     Dosage: 150 MG, UNK
     Route: 048
     Dates: start: 20090511, end: 20090514
  2. SIMVASTATIN [Concomitant]
     Indication: HYPERLIPIDAEMIA
     Dosage: 5 MG, UNK
     Route: 048
     Dates: start: 20040301
  3. VALSARTAN [Concomitant]
     Indication: HYPERTENSION
     Dosage: 80 MG, UNK
     Route: 048
     Dates: start: 20090303
  4. VALSARTAN [Concomitant]
     Dosage: UNK
  5. MOBIC [Concomitant]
     Dosage: 10 MG, UNK
     Route: 048
  6. VASOLAN [Concomitant]
     Dosage: 40 MG, UNK
     Route: 048
  7. GASMOTIN [Concomitant]
     Dosage: 5 MG, UNK
     Route: 048
  8. TAKEPRON [Concomitant]
     Dosage: 30 MG, UNK
     Route: 048
  9. WARFARIN [Concomitant]
     Dosage: 1 MG, UNK
     Route: 048
  10. DEPAS [Concomitant]
     Dosage: 0.5 MG, UNK
     Route: 048
  11. SENNOSIDE A+B [Concomitant]
     Dosage: 12 MG, UNK
     Route: 048
  12. MAGNESIUM OXIDE [Concomitant]
     Dosage: 330 MG, UNK
     Route: 048

REACTIONS (4)
  - ABDOMINAL PAIN UPPER [None]
  - BLOOD CREATINE PHOSPHOKINASE INCREASED [None]
  - DECREASED APPETITE [None]
  - MOVEMENT DISORDER [None]
